FAERS Safety Report 4630939-3 (Version None)
Quarter: 2005Q2

REPORT INFORMATION
  Report Type: 
  Country: None (occurrence: None)
  Receive Date: 20050407
  Receipt Date: 20050407
  Transmission Date: 20051028
  Serious: Yes (Hospitalization)
  Sender: FDA-Public Use
  Company Number: None

PATIENT
  Age: 43 Year
  Sex: Male
  Weight: 105.8 kg

DRUGS (1)
  1. DROTRECOGIN ALFA [Suspect]
     Indication: SEPSIS
     Dosage: 60MG, 30MGQ12H, INFUSION
     Route: 042
     Dates: start: 20050223, end: 20050224

REACTIONS (2)
  - ANAEMIA [None]
  - THROMBOCYTOPENIA [None]
